FAERS Safety Report 14581085 (Version 2)
Quarter: 2018Q1

REPORT INFORMATION
  Report Type: Report from Study
  Country: CN (occurrence: CN)
  Receive Date: 20180228
  Receipt Date: 20180302
  Transmission Date: 20180509
  Serious: Yes (Death)
  Sender: FDA-Public Use
  Company Number: CN-ROCHE-2080313

PATIENT
  Age: 69 Year
  Sex: Male
  Weight: 51 kg

DRUGS (6)
  1. CLARITYNE [Concomitant]
     Active Substance: LORATADINE
     Indication: ECZEMA
     Route: 065
     Dates: start: 20171120
  2. SELENIOUS YEAST [Concomitant]
     Indication: DECREASED APPETITE
     Route: 065
     Dates: start: 20171120
  3. MEGESTROL ACETATE. [Concomitant]
     Active Substance: MEGESTROL ACETATE
     Indication: DECREASED APPETITE
     Route: 065
     Dates: start: 20171120
  4. ATEZOLIZUMAB. [Suspect]
     Active Substance: ATEZOLIZUMAB
     Indication: NON-SMALL CELL LUNG CANCER
     Dosage: DATE OF MOST RECENT DOSE OF ATEZOLIZUMAB PRIOR TO AE ONSET 20/NOV/2017?DOSE OF LAST ATEZOLIZUMAB ADM
     Route: 042
     Dates: start: 20160808
  5. ITOPRIDE HYDROCHLORIDE [Concomitant]
     Active Substance: ITOPRIDE HYDROCHLORIDE
     Indication: DECREASED APPETITE
     Route: 065
     Dates: start: 20171120
  6. CHINESE HERBAL MEDICINE [Concomitant]
     Active Substance: HERBALS
     Indication: ECZEMA
     Route: 065
     Dates: start: 201702, end: 2017

REACTIONS (1)
  - Respiratory failure [Fatal]

NARRATIVE: CASE EVENT DATE: 20180216
